FAERS Safety Report 23203759 (Version 1)
Quarter: 2023Q4

REPORT INFORMATION
  Report Type: Report from Study
  Country: US (occurrence: US)
  Receive Date: 20231120
  Receipt Date: 20231120
  Transmission Date: 20240110
  Serious: Yes (Other)
  Sender: FDA-Public Use
  Company Number: US-Merck Healthcare KGaA-2023488354

PATIENT
  Age: 72 Year
  Sex: Female

DRUGS (3)
  1. REBIF [Suspect]
     Active Substance: INTERFERON BETA-1A
     Indication: Multiple sclerosis
     Dosage: WEEK 1 AND 2
     Route: 058
     Dates: start: 201603
  2. REBIF [Suspect]
     Active Substance: INTERFERON BETA-1A
     Dosage: WEEK 3 AND 4
     Route: 058
  3. REBIF [Suspect]
     Active Substance: INTERFERON BETA-1A
     Dosage: WEEK 5 AND THEREAFTER
     Route: 058

REACTIONS (2)
  - Meniscus injury [Recovered/Resolved]
  - Arthralgia [Not Recovered/Not Resolved]

NARRATIVE: CASE EVENT DATE: 20230501
